FAERS Safety Report 5377905-0 (Version None)
Quarter: 2007Q3

REPORT INFORMATION
  Report Type: 
  Country: None (occurrence: None)
  Receive Date: 20070703
  Receipt Date: 20070627
  Transmission Date: 20080115
  Serious: Yes (Hospitalization)
  Sender: FDA-Public Use
  Company Number: JP-MERCK-0706USA00166

PATIENT
  Age: 66 Year
  Sex: Male

DRUGS (3)
  1. ZOCOR [Suspect]
     Indication: HYPERLIPIDAEMIA
     Route: 048
  2. WARFARIN POTASSIUM [Concomitant]
     Indication: HAEMOSTASIS
     Route: 048
  3. BEZATOL SR [Concomitant]
     Indication: HYPERTRIGLYCERIDAEMIA
     Route: 048

REACTIONS (3)
  - BLOOD CREATINE PHOSPHOKINASE INCREASED [None]
  - COAGULOPATHY [None]
  - MALAISE [None]
